FAERS Safety Report 16858568 (Version 5)
Quarter: 2019Q4

REPORT INFORMATION
  Report Type: Report from Study
  Country: US (occurrence: US)
  Receive Date: 20190926
  Receipt Date: 20191223
  Transmission Date: 20200122
  Serious: Yes (Death, Life-Threatening)
  Sender: FDA-Public Use
  Company Number: US-CELGENEUS-USA-20190908337

PATIENT
  Age: 73 Year
  Sex: Male
  Weight: 61 kg

DRUGS (69)
  1. AZACITIDINE. [Suspect]
     Active Substance: AZACITIDINE
     Indication: ACUTE MYELOID LEUKAEMIA
     Route: 065
  2. LANSOPRAZOLE. [Concomitant]
     Active Substance: LANSOPRAZOLE
     Indication: PRODUCT USED FOR UNKNOWN INDICATION
     Route: 065
     Dates: start: 20190913
  3. MULTIVITAMIN [Concomitant]
     Active Substance: VITAMINS
     Indication: PRODUCT USED FOR UNKNOWN INDICATION
     Route: 065
     Dates: start: 20190910
  4. ALBUTEROL. [Concomitant]
     Active Substance: ALBUTEROL
     Indication: PRODUCT USED FOR UNKNOWN INDICATION
     Route: 065
     Dates: start: 20190905, end: 20190920
  5. MAGNESIUM SULFATE. [Concomitant]
     Active Substance: MAGNESIUM SULFATE
     Indication: PRODUCT USED FOR UNKNOWN INDICATION
     Route: 065
     Dates: start: 20190918, end: 20190920
  6. MEROPENEM TRIHYDRATE [Concomitant]
     Active Substance: MEROPENEM
     Indication: PRODUCT USED FOR UNKNOWN INDICATION
     Route: 065
     Dates: start: 20190919, end: 20190920
  7. VALGANCICLOVIR HCL [Concomitant]
     Indication: PRODUCT USED FOR UNKNOWN INDICATION
     Route: 065
     Dates: start: 20190917, end: 20190920
  8. GUAIFENESIN. [Concomitant]
     Active Substance: GUAIFENESIN
     Indication: PRODUCT USED FOR UNKNOWN INDICATION
     Route: 065
     Dates: start: 20190907
  9. OXYGEN. [Concomitant]
     Active Substance: OXYGEN
     Indication: PRODUCT USED FOR UNKNOWN INDICATION
     Dosage: 4 LITERS
     Route: 065
  10. CEFEPIME [Concomitant]
     Active Substance: CEFEPIME HYDROCHLORIDE
     Indication: PNEUMONIA
     Dosage: 4000 MILLIGRAM
     Route: 065
     Dates: start: 20191003
  11. AG-221 [Suspect]
     Active Substance: ENASIDENIB
     Route: 065
  12. ALLOPURINOL. [Concomitant]
     Active Substance: ALLOPURINOL
     Indication: PRODUCT USED FOR UNKNOWN INDICATION
     Route: 065
     Dates: start: 20190904
  13. ACETAMINOPHEN. [Concomitant]
     Active Substance: ACETAMINOPHEN
     Indication: PRODUCT USED FOR UNKNOWN INDICATION
     Route: 065
     Dates: start: 20190906, end: 20190906
  14. MAGNESIUM SULFATE. [Concomitant]
     Active Substance: MAGNESIUM SULFATE
     Dosage: 2 GRAM
     Route: 065
     Dates: start: 20191018
  15. DOXYCYCLINE. [Concomitant]
     Active Substance: DOXYCYCLINE
     Indication: PRODUCT USED FOR UNKNOWN INDICATION
     Route: 065
     Dates: start: 20190906, end: 20190913
  16. GANCICLOVIR. [Concomitant]
     Active Substance: GANCICLOVIR
     Route: 065
     Dates: start: 20190924
  17. MAGNESIUM CITRATE. [Concomitant]
     Active Substance: MAGNESIUM CITRATE
     Indication: PRODUCT USED FOR UNKNOWN INDICATION
     Route: 065
     Dates: start: 20190918, end: 20190918
  18. POTASSIUM CHLORIDE. [Concomitant]
     Active Substance: POTASSIUM CHLORIDE
     Indication: PRODUCT USED FOR UNKNOWN INDICATION
     Route: 065
     Dates: start: 20190920, end: 20190920
  19. AMLODIPINE BESILATE [Concomitant]
     Active Substance: AMLODIPINE BESYLATE
     Indication: PRODUCT USED FOR UNKNOWN INDICATION
     Route: 065
     Dates: start: 20190904, end: 20190906
  20. OXYGEN. [Concomitant]
     Active Substance: OXYGEN
     Route: 065
     Dates: start: 20191001
  21. AZACITIDINE. [Suspect]
     Active Substance: AZACITIDINE
     Dosage: 100 MILLIGRAM
     Route: 048
     Dates: start: 20191005
  22. IPRATROPIUM BROMIDE. [Concomitant]
     Active Substance: IPRATROPIUM BROMIDE
     Indication: PRODUCT USED FOR UNKNOWN INDICATION
     Route: 065
     Dates: start: 20190905
  23. TIOTROPIUM [Concomitant]
     Active Substance: TIOTROPIUM
     Indication: PRODUCT USED FOR UNKNOWN INDICATION
     Route: 065
     Dates: start: 20190904
  24. VORICONAZOLE. [Concomitant]
     Active Substance: VORICONAZOLE
     Indication: PRODUCT USED FOR UNKNOWN INDICATION
     Route: 065
     Dates: start: 20190905
  25. ONDANSETRON [Concomitant]
     Active Substance: ONDANSETRON
     Indication: PRODUCT USED FOR UNKNOWN INDICATION
     Route: 065
     Dates: start: 20190906, end: 20190917
  26. HYDROCORTISONE. [Concomitant]
     Active Substance: HYDROCORTISONE
     Indication: PRODUCT USED FOR UNKNOWN INDICATION
     Route: 065
     Dates: start: 20190915, end: 20190919
  27. LIDOCAINE. [Concomitant]
     Active Substance: LIDOCAINE
     Indication: PRODUCT USED FOR UNKNOWN INDICATION
     Route: 065
     Dates: start: 20190906, end: 20190912
  28. OXYCODONE HYDROCHLORIDE. [Concomitant]
     Active Substance: OXYCODONE HYDROCHLORIDE
     Indication: PRODUCT USED FOR UNKNOWN INDICATION
     Route: 065
     Dates: start: 20190916
  29. DELTASONE [Concomitant]
     Active Substance: PREDNISONE
     Indication: PRODUCT USED FOR UNKNOWN INDICATION
     Route: 065
     Dates: start: 20190906, end: 20190910
  30. OXYGEN. [Concomitant]
     Active Substance: OXYGEN
     Dosage: 14 LITERS
     Route: 065
  31. CEFEPIME [Concomitant]
     Active Substance: CEFEPIME HYDROCHLORIDE
     Route: 065
     Dates: start: 20190906, end: 20190917
  32. AG-221 [Suspect]
     Active Substance: ENASIDENIB
     Dosage: 100 MILLIGRAM
     Route: 048
     Dates: start: 201910, end: 20191016
  33. AG-221 [Suspect]
     Active Substance: ENASIDENIB
     Dosage: 100 MILLIGRAM
     Route: 048
     Dates: start: 20191005
  34. SODIUM CHLORIDE. [Concomitant]
     Active Substance: SODIUM CHLORIDE
     Indication: PRODUCT USED FOR UNKNOWN INDICATION
     Route: 065
     Dates: start: 20190904
  35. MORNIFLUMATE [Concomitant]
     Active Substance: MORNIFLUMATE
     Indication: PRODUCT USED FOR UNKNOWN INDICATION
     Route: 065
     Dates: start: 20190904
  36. ACETAMINOPHEN. [Concomitant]
     Active Substance: ACETAMINOPHEN
     Route: 065
     Dates: start: 20191017
  37. MAGNESIUM SULFATE+GLUCOSE [Concomitant]
     Indication: PRODUCT USED FOR UNKNOWN INDICATION
     Route: 065
     Dates: start: 20190912, end: 20190920
  38. GLYCERYL TRINITRATE [Concomitant]
     Active Substance: NITROGLYCERIN
     Indication: PRODUCT USED FOR UNKNOWN INDICATION
     Route: 065
     Dates: start: 20190906, end: 20190906
  39. LACTULOSE. [Concomitant]
     Active Substance: LACTULOSE
     Indication: PRODUCT USED FOR UNKNOWN INDICATION
     Route: 065
     Dates: start: 20190908, end: 20190917
  40. VANCOMYCIN HCL [Concomitant]
     Active Substance: VANCOMYCIN HYDROCHLORIDE
     Route: 065
     Dates: end: 20190926
  41. OXYGEN. [Concomitant]
     Active Substance: OXYGEN
     Dosage: 10 LITERS
     Route: 065
     Dates: start: 20191003
  42. OXYGEN. [Concomitant]
     Active Substance: OXYGEN
     Dosage: 8 LITER
     Route: 065
  43. ACYCLOVIR. [Concomitant]
     Active Substance: ACYCLOVIR
     Indication: INFECTION PROPHYLAXIS
     Route: 065
     Dates: start: 20191012
  44. HEPARIN SODIUM. [Concomitant]
     Active Substance: HEPARIN SODIUM
     Indication: PRODUCT USED FOR UNKNOWN INDICATION
     Route: 065
     Dates: start: 20190906
  45. MELATONIN [Concomitant]
     Active Substance: MELATONIN
     Indication: PRODUCT USED FOR UNKNOWN INDICATION
     Route: 065
     Dates: start: 20190907
  46. MAALOX ANTACID [Concomitant]
     Active Substance: ALUMINUM HYDROXIDE\DIMETHICONE\MAGNESIUM HYDROXIDE
     Indication: PRODUCT USED FOR UNKNOWN INDICATION
     Route: 065
     Dates: start: 20190913
  47. TRAZODONE HYDROCHLORIDE. [Concomitant]
     Active Substance: TRAZODONE HYDROCHLORIDE
     Indication: PRODUCT USED FOR UNKNOWN INDICATION
     Route: 065
     Dates: start: 20190912
  48. VANCOMYCIN HCL [Concomitant]
     Active Substance: VANCOMYCIN HYDROCHLORIDE
     Indication: PRODUCT USED FOR UNKNOWN INDICATION
     Route: 065
     Dates: start: 20190905, end: 20190919
  49. AZACITIDINE. [Suspect]
     Active Substance: AZACITIDINE
     Dosage: 100 MILLIGRAM
     Route: 048
     Dates: start: 201910, end: 20191016
  50. FUROSEMIDE. [Concomitant]
     Active Substance: FUROSEMIDE
     Indication: PRODUCT USED FOR UNKNOWN INDICATION
     Route: 065
     Dates: start: 20190919, end: 20190920
  51. HYDROMORPHONE [Concomitant]
     Active Substance: HYDROMORPHONE
     Indication: PRODUCT USED FOR UNKNOWN INDICATION
     Route: 065
     Dates: start: 20190906, end: 20190906
  52. LINEZOLID. [Concomitant]
     Active Substance: LINEZOLID
     Indication: PRODUCT USED FOR UNKNOWN INDICATION
     Route: 065
     Dates: start: 20190919, end: 20190920
  53. MIDAZOLAM [Concomitant]
     Active Substance: MIDAZOLAM HYDROCHLORIDE
     Indication: PRODUCT USED FOR UNKNOWN INDICATION
     Route: 065
     Dates: start: 20190912, end: 20190912
  54. OXYGEN. [Concomitant]
     Active Substance: OXYGEN
     Dosage: 6 LITERS
     Route: 065
     Dates: start: 20191003
  55. OXYGEN. [Concomitant]
     Active Substance: OXYGEN
     Dosage: 4 LITERS
     Route: 065
     Dates: start: 20191003
  56. PLATELETS [Concomitant]
     Active Substance: HUMAN PLATELET, ALLOGENIC
     Indication: PLATELET COUNT DECREASED
     Dosage: 1 IU (INTERNATIONAL UNIT)
     Route: 065
  57. AZACITIDINE. [Suspect]
     Active Substance: AZACITIDINE
     Route: 065
  58. HYDROXYUREA. [Concomitant]
     Active Substance: HYDROXYUREA
     Indication: PRODUCT USED FOR UNKNOWN INDICATION
     Route: 065
     Dates: start: 20190904
  59. MACROGOL 3350 [Concomitant]
     Active Substance: POLYETHYLENE GLYCOL 3350
     Indication: PRODUCT USED FOR UNKNOWN INDICATION
     Route: 065
     Dates: start: 20190907
  60. SENNA [Concomitant]
     Active Substance: SENNA LEAF\SENNOSIDES\SENNOSIDES A AND B
     Indication: PRODUCT USED FOR UNKNOWN INDICATION
     Route: 065
     Dates: start: 20190907
  61. AG-221 [Suspect]
     Active Substance: ENASIDENIB
     Indication: ACUTE MYELOID LEUKAEMIA
     Dosage: 100 MILLIGRAM
     Route: 048
     Dates: start: 20120920, end: 20191003
  62. FLUTICASONE PROPIONATE. [Concomitant]
     Active Substance: FLUTICASONE PROPIONATE
     Indication: PRODUCT USED FOR UNKNOWN INDICATION
     Route: 065
     Dates: start: 20190904
  63. PLASMALYTE [Concomitant]
     Active Substance: ELECTROLYTES NOS
     Indication: PRODUCT USED FOR UNKNOWN INDICATION
     Route: 065
     Dates: start: 20190904
  64. FENTANYL. [Concomitant]
     Active Substance: FENTANYL
     Indication: PRODUCT USED FOR UNKNOWN INDICATION
     Route: 065
     Dates: start: 20190912, end: 20190912
  65. GANCICLOVIR. [Concomitant]
     Active Substance: GANCICLOVIR
     Indication: PRODUCT USED FOR UNKNOWN INDICATION
     Route: 065
     Dates: start: 20190915, end: 20190917
  66. TRIAMCINOLONE ACETONIDE. [Concomitant]
     Active Substance: TRIAMCINOLONE ACETONIDE
     Indication: PRODUCT USED FOR UNKNOWN INDICATION
     Route: 065
     Dates: start: 20190918, end: 20190919
  67. CETIRIZINE HCL [Concomitant]
     Active Substance: CETIRIZINE HYDROCHLORIDE
     Indication: PRODUCT USED FOR UNKNOWN INDICATION
     Route: 065
     Dates: start: 20190907
  68. LIDOCAINE+DIPHENHYDRAMINE+MAALOX [Concomitant]
     Indication: PRODUCT USED FOR UNKNOWN INDICATION
     Route: 065
     Dates: start: 20190910
  69. OXYGEN. [Concomitant]
     Active Substance: OXYGEN
     Dosage: 3 LITER
     Route: 065

REACTIONS (3)
  - Differentiation syndrome [Not Recovered/Not Resolved]
  - Haemoptysis [Fatal]
  - Respiratory failure [Not Recovered/Not Resolved]

NARRATIVE: CASE EVENT DATE: 20190920
